FAERS Safety Report 21532908 (Version 1)
Quarter: 2022Q4

REPORT INFORMATION
  Report Type: Report from Study
  Country: US (occurrence: US)
  Receive Date: 20221101
  Receipt Date: 20221101
  Transmission Date: 20230112
  Serious: No
  Sender: FDA-Public Use
  Company Number: US-ABBVIE-4157560

PATIENT
  Age: 77 Year
  Sex: Female
  Weight: 81.192 kg

DRUGS (14)
  1. SKYRIZI [Suspect]
     Active Substance: RISANKIZUMAB-RZAA
     Indication: Psoriasis
     Route: 058
     Dates: start: 202110
  2. METOPROLOL [Concomitant]
     Active Substance: METOPROLOL
     Indication: Heart rate irregular
     Route: 065
  3. PLAQUENIL [Concomitant]
     Active Substance: HYDROXYCHLOROQUINE SULFATE
     Indication: Autoimmune inner ear disease
  4. LEFLUNOMIDE [Concomitant]
     Active Substance: LEFLUNOMIDE
     Indication: Osteoarthritis
     Route: 065
  5. FLUTICASONE [Concomitant]
     Active Substance: FLUTICASONE
     Indication: Product used for unknown indication
  6. PANTOPRAZOLE [Concomitant]
     Active Substance: PANTOPRAZOLE
     Indication: Gastrooesophageal reflux disease
     Route: 065
  7. ESTRADIOL [Concomitant]
     Active Substance: ESTRADIOL
     Indication: Hot flush
  8. MEDROXYPROGESTERONE [Concomitant]
     Active Substance: MEDROXYPROGESTERONE
     Indication: Hot flush
  9. DICLOFENAC [Concomitant]
     Active Substance: DICLOFENAC
     Indication: Osteoarthritis
  10. LASIX [Concomitant]
     Active Substance: FUROSEMIDE
     Indication: Fluid retention
  11. LEVOCETIRIZINE [Concomitant]
     Active Substance: LEVOCETIRIZINE
     Indication: Hypersensitivity
  12. TRIAMTERENE [Concomitant]
     Active Substance: TRIAMTERENE
     Indication: Fluid retention
  13. ALBUTEROL [Concomitant]
     Active Substance: ALBUTEROL
     Indication: Asthma
  14. AMITRIPTYLINE [Concomitant]
     Active Substance: AMITRIPTYLINE
     Indication: Sleep disorder

REACTIONS (2)
  - Sinusitis [Recovering/Resolving]
  - Bronchitis [Recovering/Resolving]

NARRATIVE: CASE EVENT DATE: 20220101
